FAERS Safety Report 6909682-3 (Version None)
Quarter: 2010Q3

REPORT INFORMATION
  Report Type: 
  Country: None (occurrence: None)
  Receive Date: 20100805
  Receipt Date: 20100726
  Transmission Date: 20110219
  Serious: Yes (Other)
  Sender: FDA-Public Use
  Company Number: US-GENENTECH-304860

PATIENT

DRUGS (8)
  1. RITUXIMAB [Suspect]
     Indication: LYMPHOMA
     Dosage: 375 MG/M2, UNK
     Route: 065
  2. NEUPOGEN [Suspect]
     Indication: PRODUCT USED FOR UNKNOWN INDICATION
     Dosage: UNK
     Route: 058
  3. PROLEUKIN [Suspect]
     Indication: PRODUCT USED FOR UNKNOWN INDICATION
     Dosage: UNK
     Route: 058
  4. GRANULOCYTE MACROPHAG/COLONY STIM FACTOR [Suspect]
     Indication: PRODUCT USED FOR UNKNOWN INDICATION
     Dosage: UNK
     Route: 058
  5. CARMUSTINE [Suspect]
     Indication: LYMPHOMA
     Dosage: 300 MG/M2, UNK
     Route: 065
  6. ETOPOSIDE [Suspect]
     Indication: LYMPHOMA
     Dosage: 200 MG/M2, BID
     Route: 065
  7. CYTARABINE [Suspect]
     Indication: LYMPHOMA
     Dosage: 200 MG/M2, BID
     Route: 065
  8. MELPHALAN [Suspect]
     Indication: LYMPHOMA
     Dosage: 140 MG/M2, UNK
     Route: 065

REACTIONS (20)
  - ACUTE MYELOID LEUKAEMIA [None]
  - ANAPHYLACTIC REACTION [None]
  - CARDIAC FAILURE [None]
  - CARDIOGENIC SHOCK [None]
  - CARDIOMYOPATHY [None]
  - DEATH [None]
  - DEPRESSION [None]
  - DIARRHOEA [None]
  - ENDOCARDITIS [None]
  - FEBRILE NEUTROPENIA [None]
  - GRAFT VERSUS HOST DISEASE [None]
  - MUCOSAL INFLAMMATION [None]
  - MYELODYSPLASTIC SYNDROME [None]
  - NEUTROPENIA [None]
  - PLEURAL EFFUSION [None]
  - PNEUMONIA [None]
  - PNEUMONITIS [None]
  - RESPIRATORY FAILURE [None]
  - SEPSIS [None]
  - THROMBOCYTOPENIA [None]
